FAERS Safety Report 7218025-X (Version None)
Quarter: 2011Q1

REPORT INFORMATION
  Report Type: 
  Country: None (occurrence: None)
  Receive Date: 20110110
  Receipt Date: 20110104
  Transmission Date: 20110831
  Serious: Yes (Other)
  Sender: FDA-Public Use
  Company Number: US-WATSON-2011-00035

PATIENT
  Sex: Female
  Weight: 70.748 kg

DRUGS (1)
  1. FENTANYL-100 [Suspect]
     Indication: PAIN
     Dosage: 1 PATCH, SINGLE
     Route: 062
     Dates: start: 20101223, end: 20101224

REACTIONS (9)
  - TREMOR [None]
  - LOSS OF CONSCIOUSNESS [None]
  - DYSSTASIA [None]
  - CONVULSION [None]
  - FALL [None]
  - MEMORY IMPAIRMENT [None]
  - NAUSEA [None]
  - HYPERHIDROSIS [None]
  - APPLICATION SITE EXFOLIATION [None]
